FAERS Safety Report 7134449-3 (Version None)
Quarter: 2010Q4

REPORT INFORMATION
  Report Type: 
  Country: None (occurrence: None)
  Receive Date: 20101130
  Receipt Date: 20101130
  Transmission Date: 20110411
  Serious: Yes (Hospitalization)
  Sender: FDA-Public Use
  Company Number: None

PATIENT
  Age: 62 Year
  Sex: Male

DRUGS (1)
  1. HALOPERIDOL [Suspect]
     Indication: PSYCHOTIC DISORDER
     Dates: start: 20101101, end: 20101110

REACTIONS (11)
  - AGITATION [None]
  - CONFUSIONAL STATE [None]
  - DELIRIUM [None]
  - DEPRESSED LEVEL OF CONSCIOUSNESS [None]
  - DRUG WITHDRAWAL SYNDROME [None]
  - DYSTONIA [None]
  - HALLUCINATION [None]
  - HEART RATE INCREASED [None]
  - MENTAL STATUS CHANGES [None]
  - MUSCLE RIGIDITY [None]
  - MYOCLONUS [None]
